FAERS Safety Report 25124812 (Version 1)
Quarter: 2025Q1

REPORT INFORMATION
  Report Type: Spontaneous
  Country: US (occurrence: US)
  Receive Date: 20250326
  Receipt Date: 20250326
  Transmission Date: 20250409
  Serious: Yes (Death, Other)
  Sender: DR REDDYS
  Company Number: US-DRL-USA-USA/2025/03/004422

PATIENT
  Age: 20 Year
  Sex: Female

DRUGS (8)
  1. PHENYLEPHRINE HYDROCHLORIDE [Suspect]
     Active Substance: PHENYLEPHRINE HYDROCHLORIDE
     Indication: Cardiac failure high output
  2. NOREPINEPHRINE [Concomitant]
     Active Substance: NOREPINEPHRINE
     Indication: Cardiac failure high output
  3. VASOPRESSIN [Concomitant]
     Active Substance: VASOPRESSIN
     Indication: Cardiac failure high output
  4. EPINEPHRINE [Concomitant]
     Active Substance: EPINEPHRINE
     Indication: Cardiac failure high output
  5. METHYLENE BLUE [Concomitant]
     Active Substance: METHYLENE BLUE
     Indication: Vasoplegia syndrome
  6. HYDROXOCOBALAMIN [Concomitant]
     Active Substance: HYDROXOCOBALAMIN
     Indication: Vasoplegia syndrome
  7. GLUCAGON [Concomitant]
     Active Substance: GLUCAGON
     Indication: Overdose
  8. CALCIUM [Concomitant]
     Active Substance: CALCIUM
     Indication: Overdose

REACTIONS (1)
  - Drug ineffective for unapproved indication [Fatal]
